FAERS Safety Report 8254324-0 (Version None)
Quarter: 2012Q2

REPORT INFORMATION
  Report Type: 
  Country: None (occurrence: None)
  Receive Date: 20120402
  Receipt Date: 20120323
  Transmission Date: 20120825
  Serious: No
  Sender: FDA-Public Use
  Company Number: US-AMGEN-USASP2012018921

PATIENT
  Age: 36 Year
  Sex: Male

DRUGS (1)
  1. ENBREL [Suspect]
     Indication: PSORIASIS
     Dosage: 50 MG, 2 TIMES/WK
     Dates: start: 20120227

REACTIONS (6)
  - PAIN [None]
  - INJECTION SITE SWELLING [None]
  - PYREXIA [None]
  - INJECTION SITE RECALL REACTION [None]
  - INJECTION SITE ERYTHEMA [None]
  - COUGH [None]
